FAERS Safety Report 8549887-1 (Version None)
Quarter: 2012Q3

REPORT INFORMATION
  Report Type: 
  Country: None (occurrence: None)
  Receive Date: 20120730
  Receipt Date: 20111206
  Transmission Date: 20120928
  Serious: No
  Sender: FDA-Public Use
  Company Number: US-GLAXOSMITHKLINE-A0957566A

PATIENT
  Sex: Female

DRUGS (3)
  1. VENTOLIN [Concomitant]
  2. IMITREX [Suspect]
     Indication: MIGRAINE
     Route: 065
  3. ADVAIR DISKUS 100/50 [Concomitant]

REACTIONS (3)
  - HEADACHE [None]
  - PAIN [None]
  - MIGRAINE [None]
